FAERS Safety Report 16863606 (Version 1)
Quarter: 2019Q3

REPORT INFORMATION
  Report Type: Report from Study
  Country: US (occurrence: US)
  Receive Date: 20190927
  Receipt Date: 20190927
  Transmission Date: 20191005
  Serious: Yes (Hospitalization, Other)
  Sender: FDA-Public Use
  Company Number: US-GILEAD-2019-0430672

PATIENT
  Age: 44 Year
  Sex: Female

DRUGS (15)
  1. TOBRAMYCIN. [Suspect]
     Active Substance: TOBRAMYCIN
     Indication: CYSTIC FIBROSIS
     Dosage: 1 DOSAGE FORM, 28 DAY ON 28 DAYS OFF
     Route: 055
  2. ESOMEPRAZOLE. [Concomitant]
     Active Substance: ESOMEPRAZOLE MAGNESIUM
  3. AZTREONAM LYSINE [Suspect]
     Active Substance: AZTREONAM LYSINE
     Indication: CYSTIC FIBROSIS
     Dosage: 1 DOSAGE FORM, 28D ON / 28 D OFF
     Route: 055
  4. LANTUS [Concomitant]
     Active Substance: INSULIN GLARGINE
  5. SIMVASTATIN. [Concomitant]
     Active Substance: SIMVASTATIN
  6. HUMALOG [Concomitant]
     Active Substance: INSULIN LISPRO
  7. SYMDEKO [Suspect]
     Active Substance: IVACAFTOR\TEZACAFTOR
     Indication: CYSTIC FIBROSIS
     Dosage: 1 YELLOW TABLET IN AM / 1 BLUE TABLET IN PM, 100 MG/150 MG TABS
     Route: 065
  8. BUPROPION. [Concomitant]
     Active Substance: BUPROPION
  9. PREDNISONE. [Concomitant]
     Active Substance: PREDNISONE
     Dosage: UNKNOWN
  10. ALBUTEROL SULFATE. [Concomitant]
     Active Substance: ALBUTEROL SULFATE
  11. LISINOPRIL. [Concomitant]
     Active Substance: LISINOPRIL
  12. SPRIX [Concomitant]
     Active Substance: KETOROLAC TROMETHAMINE
  13. ZENPEP [Concomitant]
     Active Substance: PANCRELIPASE AMYLASE\PANCRELIPASE LIPASE\PANCRELIPASE PROTEASE
  14. ADVAIR HFA [Concomitant]
     Active Substance: FLUTICASONE PROPIONATE\SALMETEROL XINAFOATE
  15. VENTOLIN [Concomitant]
     Active Substance: ALBUTEROL SULFATE

REACTIONS (2)
  - Haemoptysis [Unknown]
  - Cystic fibrosis [Unknown]
